FAERS Safety Report 21506781 (Version 3)
Quarter: 2022Q4

REPORT INFORMATION
  Report Type: Report from Study
  Country: CA (occurrence: CA)
  Receive Date: 20221026
  Receipt Date: 20221216
  Transmission Date: 20230112
  Serious: Yes (Hospitalization, Other)
  Sender: FDA-Public Use
  Company Number: CA-JNJFOC-20221037401

PATIENT
  Age: 57 Year
  Sex: Male
  Weight: 115 kg

DRUGS (1)
  1. REMICADE [Suspect]
     Active Substance: INFLIXIMAB
     Indication: Hidradenitis
     Dosage: PRODUCT EXPIRY DATE: MAR-2025, THE PATIENT RECEIVED LAST REMICADE INFUSION ON 11-NOV-2022
     Route: 041

REACTIONS (7)
  - Heart rate increased [Unknown]
  - Vomiting [Recovered/Resolved]
  - Chest pain [Unknown]
  - Nausea [Recovered/Resolved]
  - Infusion related reaction [Recovered/Resolved]
  - Hypotension [Recovered/Resolved]
  - Inappropriate schedule of product administration [Unknown]

NARRATIVE: CASE EVENT DATE: 20221018
